FAERS Safety Report 6687684-2 (Version None)
Quarter: 2010Q2

REPORT INFORMATION
  Report Type: 
  Country: None (occurrence: None)
  Receive Date: 20100409
  Receipt Date: 20090803
  Transmission Date: 20101027
  Serious: Yes (Hospitalization)
  Sender: FDA-Public Use
  Company Number: AE 2009-094

PATIENT
  Age: 76 Year
  Sex: Female

DRUGS (11)
  1. FAZACLO ODT [Suspect]
     Indication: DRUG USE FOR UNKNOWN INDICATION
     Dosage: 50 MG QHS PO
     Route: 048
     Dates: start: 20081231
  2. CARBIDOPA + LEVODOPA [Concomitant]
  3. CIPRO [Concomitant]
  4. EXELON [Concomitant]
  5. HEPARIN [Concomitant]
  6. MIRAPEX [Concomitant]
  7. PRISTIQ [Concomitant]
  8. PROTONIX [Concomitant]
  9. THIAMINE [Concomitant]
  10. TOPROL-XL [Concomitant]
  11. VITAMIN B1 TAB [Concomitant]

REACTIONS (2)
  - NAUSEA [None]
  - VOMITING [None]
